FAERS Safety Report 14659577 (Version 3)
Quarter: 2022Q4

REPORT INFORMATION
  Report Type: Spontaneous
  Country: US (occurrence: US)
  Receive Date: 20180320
  Receipt Date: 20221012
  Transmission Date: 20230113
  Serious: No
  Sender: FDA-Public Use
  Company Number: US-CELLTRION INC.-2017US017303

PATIENT

DRUGS (3)
  1. INFLECTRA [Suspect]
     Active Substance: INFLIXIMAB-DYYB
     Indication: Psoriatic arthropathy
     Dosage: 5 DF, UNK (5 VIALS EVERY 8 WEEKS)
     Route: 042
     Dates: start: 20171109, end: 20171109
  2. INFLECTRA [Suspect]
     Active Substance: INFLIXIMAB-DYYB
     Dosage: UNK (5 VIALS) (INFUSION)
     Route: 065
     Dates: start: 20180315, end: 20180315
  3. INFLECTRA [Suspect]
     Active Substance: INFLIXIMAB-DYYB
     Dosage: UNK, (5-100 MG/20ML WITH DIRECTIONS 100 MG Q 8 WKS)
     Route: 042

REACTIONS (1)
  - Off label use [Unknown]
